FAERS Safety Report 10025106 (Version 2)
Quarter: 2014Q2

REPORT INFORMATION
  Report Type: Spontaneous
  Country: US (occurrence: None)
  Receive Date: 20140212
  Receipt Date: 20140611
  Transmission Date: 20141212
  Serious: Yes (Other)
  Sender: FDA-Public Use
  Company Number: 2014-US-001454

PATIENT
  Age: 57 Year
  Sex: Male
  Weight: 95.2 kg

DRUGS (3)
  1. XYREM [Suspect]
     Indication: APNOEA
     Route: 048
     Dates: start: 201011
  2. XYREM [Suspect]
     Indication: NARCOLEPSY
     Route: 048
     Dates: start: 201011
  3. LIPITOR (ATORVASTATIN CALCIUM) [Concomitant]

REACTIONS (1)
  - Transient ischaemic attack [None]
